FAERS Safety Report 8777148 (Version 2)
Quarter: 2013Q1

REPORT INFORMATION
  Report Type: Spontaneous
  Country: US (occurrence: US)
  Receive Date: 20120911
  Receipt Date: 20130115
  Transmission Date: 20140127
  Serious: No
  Sender: FDA-Public Use
  Company Number: US-009507513-1209USA002398

PATIENT
  Age: 21 Year
  Sex: Female
  Weight: 92.97 kg

DRUGS (2)
  1. IMPLANON [Suspect]
     Indication: CONTRACEPTION
     Dosage: UNK
     Dates: start: 20110413
  2. CODEINE [Concomitant]

REACTIONS (4)
  - Fall [Unknown]
  - Medical device complication [Unknown]
  - Implant site pain [Unknown]
  - Implant site bruising [Unknown]
